FAERS Safety Report 7142857-X (Version None)
Quarter: 2010Q4

REPORT INFORMATION
  Report Type: 
  Country: None (occurrence: None)
  Receive Date: 20101207
  Receipt Date: 20101124
  Transmission Date: 20110411
  Serious: Yes (Hospitalization)
  Sender: FDA-Public Use
  Company Number: DE-MYLANLABS-2009S1006676

PATIENT
  Age: 59 Year
  Sex: Male

DRUGS (7)
  1. BISOPROLOL [Suspect]
     Indication: HYPERTENSION
     Route: 048
     Dates: start: 20050101, end: 20090207
  2. TEGRETOL [Suspect]
     Indication: PARTIAL SEIZURES
     Dosage: 400-0-500 MG
     Route: 048
     Dates: start: 20050101
  3. KEPPRA [Interacting]
     Indication: PARTIAL SEIZURES
     Route: 048
     Dates: start: 20090201
  4. MOVICOL [Concomitant]
     Indication: CONSTIPATION
     Route: 048
  5. TICLOPIDINE HCL [Concomitant]
     Indication: CEREBELLAR INFARCTION
     Route: 048
     Dates: start: 19980101
  6. ENALAPRIL [Concomitant]
     Indication: HYPERTENSION
     Route: 048
     Dates: start: 20050101
  7. HYDROCHLOROTHIAZIDE [Concomitant]
     Indication: HYPERTENSION
     Route: 048
     Dates: start: 20050101

REACTIONS (3)
  - DRUG INTERACTION [None]
  - SINUS BRADYCARDIA [None]
  - SOMNOLENCE [None]
